FAERS Safety Report 16807670 (Version 3)
Quarter: 2019Q3

REPORT INFORMATION
  Report Type: Spontaneous
  Country: ES (occurrence: ES)
  Receive Date: 20190914
  Receipt Date: 20190924
  Transmission Date: 20191005
  Serious: Yes (Other)
  Sender: FDA-Public Use
  Company Number: ES-JNJFOC-20190909183

PATIENT
  Age: 2 Year
  Sex: Female
  Weight: 10.4 kg

DRUGS (4)
  1. OMEPRAZOLE. [Suspect]
     Active Substance: OMEPRAZOLE
     Indication: PROPHYLAXIS AGAINST GASTROINTESTINAL ULCER
     Dosage: 5 MG/12 H
     Route: 048
     Dates: start: 20190311, end: 20190718
  2. INDOMETACIN [Concomitant]
     Active Substance: INDOMETHACIN
     Indication: BARTTER^S SYNDROME
     Route: 065
  3. MINOXIDIL. [Suspect]
     Active Substance: MINOXIDIL
     Indication: PRODUCT USED FOR UNKNOWN INDICATION
     Route: 048
     Dates: start: 20190311, end: 20190718
  4. HYDROCHLORTHIAZID [Concomitant]
     Active Substance: HYDROCHLOROTHIAZIDE
     Indication: BARTTER^S SYNDROME
     Route: 065

REACTIONS (2)
  - Hypertrichosis [Recovering/Resolving]
  - Product formulation issue [Recovering/Resolving]

NARRATIVE: CASE EVENT DATE: 20190311
